FAERS Safety Report 17300917 (Version 2)
Quarter: 2020Q1

REPORT INFORMATION
  Report Type: Spontaneous
  Country: US (occurrence: US)
  Receive Date: 20200122
  Receipt Date: 20200227
  Transmission Date: 20200409
  Serious: No
  Sender: FDA-Public Use
  Company Number: US-PFIZER INC-2020028656

PATIENT
  Sex: Female

DRUGS (2)
  1. CELEBREX [Suspect]
     Active Substance: CELECOXIB
     Dosage: 200 MG, 1X/DAY [TAKE ONE IN THE MORNING, IF STILL FEELING BAD IN THE EVENING SHE WILL TAKE OTHERONE]
  2. CELEBREX [Suspect]
     Active Substance: CELECOXIB
     Dosage: 100 MG, 1X/DAY (WHEN SHE IS FEELING WELL SHE WILL TAKE ONE)

REACTIONS (1)
  - Intentional product misuse [Unknown]
